FAERS Safety Report 16899830 (Version 1)
Quarter: 2019Q4

REPORT INFORMATION
  Report Type: Spontaneous
  Country: JP (occurrence: JP)
  Receive Date: 20191009
  Receipt Date: 20191009
  Transmission Date: 20200122
  Serious: Yes (Other)
  Sender: FDA-Public Use
  Company Number: JP-BAYER-2019-148428

PATIENT
  Age: 62 Year
  Sex: Male

DRUGS (3)
  1. XOFIGO [Suspect]
     Active Substance: RADIUM RA-223 DICHLORIDE
     Indication: HORMONE-REFRACTORY PROSTATE CANCER
     Dosage: 3410 KBQ, Q4WK
     Route: 042
     Dates: start: 20190418
  2. XOFIGO [Suspect]
     Active Substance: RADIUM RA-223 DICHLORIDE
     Indication: METASTASES TO BONE
  3. RANMARK [Concomitant]
     Active Substance: DENOSUMAB

REACTIONS (5)
  - Metastases to bone marrow [None]
  - Plasma cell myeloma [None]
  - Bone marrow infiltration [None]
  - Platelet count decreased [None]
  - Hormone-refractory prostate cancer [None]
